FAERS Safety Report 4389269-X (Version None)
Quarter: 2004Q2

REPORT INFORMATION
  Report Type: 
  Country: None (occurrence: None)
  Receive Date: 20040628
  Receipt Date: 20040614
  Transmission Date: 20050107
  Serious: Yes (Hospitalization)
  Sender: FDA-Public Use
  Company Number: GBR-2002-0000106

PATIENT
  Age: 57 Year
  Sex: Male

DRUGS (8)
  1. OXYNORM CAPSULES (OXYCODONE HYDROCHLORIDE) IR [Suspect]
     Indication: PAIN
     Dosage: 2.5 MG, Q4H, ORAL
     Route: 048
     Dates: start: 20020123, end: 20020125
  2. CO-CODAMOL (CODEINE PHOSPHATE, PARACETAMOL) [Suspect]
     Indication: PAIN
     Dosage: 2 TABLET, QID, ORAL
     Route: 048
     Dates: end: 20020123
  3. CO-DANTHRAMER SUSPENSION           (DANTRON, POLOZAMER) [Concomitant]
  4. OMEPRAZOLE [Concomitant]
  5. ACETAMINOPHEN [Concomitant]
  6. METOCLOPRAMIDE [Concomitant]
  7. ASILONE SUSPENSION (MAGNESIUM OXIDE, ALUMINIUM HYDROXIDE GEL, DRIED, S [Concomitant]
  8. SENNA (SENNA) [Concomitant]

REACTIONS (4)
  - ANGIONEUROTIC OEDEMA [None]
  - CHEST DISCOMFORT [None]
  - PRURITUS GENERALISED [None]
  - URTICARIA [None]
